FAERS Safety Report 9317701 (Version 1)
Quarter: 2013Q2

REPORT INFORMATION
  Report Type: Spontaneous
  Country: US (occurrence: US)
  Receive Date: 20130530
  Receipt Date: 20130530
  Transmission Date: 20140414
  Serious: No
  Sender: FDA-Public Use
  Company Number: US-GLAXOSMITHKLINE-A0977523A

PATIENT
  Sex: Female

DRUGS (3)
  1. VENTOLIN [Suspect]
     Indication: ASTHMA
     Dosage: 2PUFF FOUR TIMES PER DAY
     Route: 055
     Dates: start: 2009
  2. BENAZEPRIL [Concomitant]
  3. CLONIDINE [Concomitant]

REACTIONS (3)
  - Dyspnoea [Unknown]
  - Wheezing [Unknown]
  - Therapeutic response decreased [Unknown]
